FAERS Safety Report 5808174-2 (Version None)
Quarter: 2008Q3

REPORT INFORMATION
  Report Type: 
  Country: None (occurrence: None)
  Receive Date: 20080709
  Receipt Date: 20080626
  Transmission Date: 20090109
  Serious: Yes (Hospitalization)
  Sender: FDA-Public Use
  Company Number: 2008MB000079

PATIENT
  Age: 82 Year
  Sex: Female
  Weight: 68.0396 kg

DRUGS (3)
  1. KEFLEX [Suspect]
     Indication: DRUG USE FOR UNKNOWN INDICATION
     Dosage: 500 MG; QD
     Dates: start: 20080602
  2. LORTAB [Concomitant]
  3. BLINDED STUDY DRUG [Suspect]

REACTIONS (3)
  - DRUG HYPERSENSITIVITY [None]
  - PYREXIA [None]
  - RASH [None]
